FAERS Safety Report 5933399-5 (Version None)
Quarter: 2008Q4

REPORT INFORMATION
  Report Type: 
  Country: None (occurrence: None)
  Receive Date: 20081023
  Receipt Date: 20081010
  Transmission Date: 20090506
  Serious: Yes (Other)
  Sender: FDA-Public Use
  Company Number: 230400K07USA

PATIENT
  Age: 62 Year
  Sex: Female
  Weight: 68 kg

DRUGS (2)
  1. REBIF [Suspect]
     Indication: MULTIPLE SCLEROSIS
     Dosage: 44 MCG, 3 IN 1 WEEKS, SUBCUTANEOUS
     Route: 058
     Dates: start: 20020724, end: 20070101
  2. SOLU-MEDROL [Suspect]
     Indication: MULTIPLE SCLEROSIS
     Dosage: NOTE REPORTED, NOT REPORTED, NOT REPORTED

REACTIONS (5)
  - ANGIOPATHY [None]
  - ARTHRALGIA [None]
  - NECROSIS [None]
  - NERVE INJURY [None]
  - NEUROPATHY PERIPHERAL [None]
